FAERS Safety Report 8851092 (Version 2)
Quarter: 2012Q4

REPORT INFORMATION
  Report Type: 
  Country: ZA (occurrence: ZA)
  Receive Date: 20121019
  Receipt Date: 20121114
  Transmission Date: 20130627
  Serious: Yes (Life-Threatening)
  Sender: FDA-Public Use
  Company Number: ZA-GENZYME-THYM-1003439

PATIENT
  Age: 16 Year
  Weight: 44 kg

DRUGS (1)
  1. THYMOGLOBULINE [Suspect]
     Indication: ACUTE HEPATIC FAILURE
     Dosage: 1.1 mg/kg, qd
     Route: 042
     Dates: start: 20121002

REACTIONS (2)
  - Drug ineffective [Unknown]
  - Incorrect dose administered [Unknown]
